FAERS Safety Report 5835635-2 (Version None)
Quarter: 2008Q3

REPORT INFORMATION
  Report Type: 
  Country: None (occurrence: None)
  Receive Date: 20080806
  Receipt Date: 20080801
  Transmission Date: 20090109
  Serious: Yes (Hospitalization)
  Sender: FDA-Public Use
  Company Number: FR-ASTRAZENECA-2008CG01174

PATIENT
  Age: 436 Month
  Sex: Female

DRUGS (1)
  1. DIPRIVAN [Suspect]
     Indication: INDUCTION OF ANAESTHESIA
     Route: 042
     Dates: start: 20080701, end: 20080701

REACTIONS (2)
  - INSOMNIA [None]
  - PSYCHOMOTOR SKILLS IMPAIRED [None]
